FAERS Safety Report 4357394-5 (Version None)
Quarter: 2004Q2

REPORT INFORMATION
  Report Type: 
  Country: None (occurrence: None)
  Receive Date: 20040506
  Receipt Date: 20040423
  Transmission Date: 20050107
  Serious: Yes (Death)
  Sender: FDA-Public Use
  Company Number: DSA_70254_2004

PATIENT
  Sex: Female

DRUGS (1)
  1. TERBUTALINE SULFATE [Suspect]
     Indication: TOCOLYSIS

REACTIONS (5)
  - ACCIDENT [None]
  - COMPLICATIONS OF MATERNAL EXPOSURE TO THERAPEUTIC DRUGS [None]
  - MATERNAL DRUGS AFFECTING FOETUS [None]
  - STILLBIRTH [None]
  - UMBILICAL CORD ABNORMALITY [None]
